FAERS Safety Report 6377432-8 (Version None)
Quarter: 2009Q3

REPORT INFORMATION
  Report Type: 
  Country: None (occurrence: None)
  Receive Date: 20090923
  Receipt Date: 20090923
  Transmission Date: 20100115
  Serious: No
  Sender: FDA-Public Use
  Company Number: None

PATIENT
  Age: 69 Year
  Sex: Male
  Weight: 122.5 kg

DRUGS (13)
  1. HYDROMORPHONE [Suspect]
     Indication: PAIN
     Dosage: 4MG PO Q3H
     Route: 048
     Dates: start: 20090629
  2. LACTOBACILLUS [Concomitant]
  3. XALATAN [Concomitant]
  4. MIRALAX [Concomitant]
  5. TIMOLOL [Concomitant]
  6. CALCIUM ACETATE [Concomitant]
  7. BENADRYL [Concomitant]
  8. DORZOLAMIDE [Concomitant]
  9. FERROUS SULFATE TAB [Concomitant]
  10. FUROSEMIDE [Concomitant]
  11. INSULIN ASPART [Concomitant]
  12. WARFARIN [Concomitant]
  13. HEPARIN [Concomitant]

REACTIONS (1)
  - SOMNOLENCE [None]
